FAERS Safety Report 8903909 (Version 3)
Quarter: 2012Q4

REPORT INFORMATION
  Report Type: 
  Country: JP (occurrence: JP)
  Receive Date: 20121112
  Receipt Date: 20121213
  Transmission Date: 20130627
  Serious: Yes (Life-Threatening, Hospitalization, Disabling, Other)
  Sender: FDA-Public Use
  Company Number: JP-BAYER-2012-117291

PATIENT
  Age: 50 Year
  Sex: Male

DRUGS (11)
  1. ASPIRIN [Suspect]
     Indication: CORONARY ARTERIAL STENT INSERTION
     Dosage: Daily dose 100 mg
     Dates: start: 20090715, end: 20090716
  2. CLOPIDOGREL [Suspect]
     Indication: CORONARY ARTERIAL STENT INSERTION
     Dosage: Daily dose 300 mg
     Dates: start: 20090714, end: 20090714
  3. CLOPIDOGREL [Suspect]
     Indication: CORONARY ARTERIAL STENT INSERTION
     Dosage: Daily dose 75 mg
     Dates: start: 20090715, end: 20090716
  4. BUFFERIN [Suspect]
     Indication: CORONARY ARTERIAL STENT INSERTION
     Dosage: Daily dose 160 mg
     Dates: start: 20090714, end: 20090714
  5. HEPARIN [Suspect]
     Indication: ANTICOAGULANT THERAPY
     Dosage: 625 iu, Q1HR
     Route: 042
     Dates: start: 20090714, end: 20090715
  6. HEPARIN [Suspect]
     Indication: CARDIOPULMONARY BYPASS
     Dosage: 100 iu, Q1HR
     Dates: start: 20090715, end: 20090716
  7. HEPARIN [Suspect]
     Indication: INTRA-AORTIC BALLOON PLACEMENT
  8. TICLOPIDINE [Suspect]
     Indication: ANTICOAGULANT THERAPY
     Dosage: loading dose
  9. TICLOPIDINE [Suspect]
     Indication: ANTICOAGULANT THERAPY
     Dosage: Daily dose 75 mg
  10. DORMICUM [Concomitant]
  11. ROCURONIUM BROMIDE [Concomitant]
     Indication: ANAESTHESIA

REACTIONS (10)
  - Hepatic haemorrhage [Recovered/Resolved]
  - Liver injury [Recovered/Resolved]
  - Traumatic liver injury [None]
  - Activated partial thromboplastin time prolonged [None]
  - Anaemia [None]
  - Left ventricular dysfunction [None]
  - Peritoneal haemorrhage [None]
  - Nervous system disorder [None]
  - Encephalopathy [None]
  - Altered state of consciousness [None]
